FAERS Safety Report 9163547 (Version 1)
Quarter: 2012Q4

REPORT INFORMATION
  Report Type: 
  Country: BR (occurrence: BR)
  Receive Date: 20121207
  Receipt Date: 20121207
  Transmission Date: 20130627
  Serious: Yes (Other)
  Sender: FDA-Public Use
  Company Number: BR-CTI_01549_2012

PATIENT
  Age: 49 None
  Sex: Female

DRUGS (3)
  1. FACTIVE [Suspect]
     Indication: RHINITIS
     Route: 048
     Dates: start: 20121102, end: 20121104
  2. FLUIMUCIL [Concomitant]
     Indication: RHINITIS
     Dates: start: 20121101, end: 20121104
  3. PRELONE [Suspect]
     Indication: RHINITIS
     Dosage: 10 mL, twice a day
     Dates: start: 20121101, end: 20121104

REACTIONS (4)
  - Back pain [Unknown]
  - Pancreatitis acute [Not Recovered/Not Resolved]
  - Off label use [Unknown]
  - Drug interaction [Unknown]
